FAERS Safety Report 11027863 (Version 2)
Quarter: 2015Q2

REPORT INFORMATION
  Report Type: Spontaneous
  Country: US (occurrence: US)
  Receive Date: 20150414
  Receipt Date: 20150525
  Transmission Date: 20150821
  Serious: No
  Sender: FDA-Public Use
  Company Number: US-JNJFOC-20120614242

PATIENT
  Sex: Female
  Weight: 61.24 kg

DRUGS (4)
  1. ORTHO TRI CYCLEN LO [Suspect]
     Active Substance: ETHINYL ESTRADIOL\NORGESTIMATE
     Indication: CONTRACEPTION
     Route: 048
     Dates: start: 2008, end: 201007
  2. FLAXSEED [Concomitant]
     Active Substance: FLAX SEED
     Indication: CONSTIPATION
     Route: 065
  3. VITAMIN [Concomitant]
     Active Substance: VITAMINS
     Route: 065
  4. LYRICA [Suspect]
     Active Substance: PREGABALIN
     Indication: VULVOVAGINAL PAIN
     Route: 065
     Dates: start: 2009

REACTIONS (1)
  - Vulvovaginal pain [Unknown]

NARRATIVE: CASE EVENT DATE: 2009
